FAERS Safety Report 5533310-5 (Version None)
Quarter: 2007Q4

REPORT INFORMATION
  Report Type: 
  Country: None (occurrence: None)
  Receive Date: 20071204
  Receipt Date: 20071122
  Transmission Date: 20080405
  Serious: Yes (Hospitalization)
  Sender: FDA-Public Use
  Company Number: IT-WYE-H01392407

PATIENT
  Sex: Female
  Weight: 56 kg

DRUGS (8)
  1. GEMTUZUMAB OZOGAMICIN [Suspect]
     Indication: ACUTE MYELOID LEUKAEMIA
     Dosage: NOT PROVIDED
     Route: 065
  2. LEVOFLOXACIN [Concomitant]
     Dosage: NOT PROVIDED
     Route: 065
     Dates: start: 20071025, end: 20071111
  3. NEUPOGEN [Concomitant]
     Dosage: 300 MG - FREQUENCY NOT PROVIDED (1200 MG CUMULATIVE DOSE GIVEN)
     Route: 065
     Dates: start: 20071109, end: 20071112
  4. IDARUBICIN HCL [Suspect]
     Indication: ACUTE MYELOID LEUKAEMIA
     Dosage: NOT PROVIDED
     Route: 065
  5. ETOPOSIDE [Suspect]
     Indication: ACUTE MYELOID LEUKAEMIA
     Dosage: NOT PROVIDED
     Route: 065
  6. CYTARABINE [Suspect]
     Indication: ACUTE MYELOID LEUKAEMIA
     Dosage: NOT PROVIDED
     Route: 065
  7. TRANEXAMIC ACID [Concomitant]
     Dosage: NOT PROVIDED
     Route: 065
     Dates: start: 20071102
  8. HYDROCORTISON [Concomitant]
     Dosage: 100 MG - FREQUENCY NOT PROVIDED (100 MG CUMULATIVE DOSE GIVEN)
     Route: 065
     Dates: start: 20071109, end: 20071109

REACTIONS (2)
  - APLASIA [None]
  - SEPSIS [None]
